FAERS Safety Report 9563530 (Version 1)
Quarter: 2013Q1

REPORT INFORMATION
  Report Type: Spontaneous
  Country: US (occurrence: None)
  Receive Date: 20121227
  Receipt Date: 20121227
  Transmission Date: 20140127
  Serious: Yes (Other)
  Sender: FDA-Public Use
  Company Number: PHEH2012US015533

PATIENT
  Age: 68 Year
  Sex: Female
  Weight: 72.8 kg

DRUGS (5)
  1. EXJADE [Suspect]
     Indication: HAEMOSIDEROSIS
     Route: 048
     Dates: start: 20110310, end: 20110808
  2. EXJADE [Suspect]
     Indication: TRANSFUSION
     Route: 048
     Dates: start: 20110310, end: 20110808
  3. LOVENOX (HEPARIN-FRACTION, SODIUM SALT) [Concomitant]
  4. VELCADE (BORTEZOMIB) [Concomitant]
  5. REVLIMID (LENALIDOMIDE) [Concomitant]

REACTIONS (1)
  - Serum ferritin increased [None]
